FAERS Safety Report 10867407 (Version 2)
Quarter: 2021Q3

REPORT INFORMATION
  Report Type: Spontaneous
  Country: DK (occurrence: DK)
  Receive Date: 20150225
  Receipt Date: 20210709
  Transmission Date: 20211014
  Serious: Yes (Congenital Anomaly, Other)
  Sender: FDA-Public Use
  Company Number: DK-JNJFOC-20150213205

PATIENT

DRUGS (2)
  1. ATOMOXETINE. [Suspect]
     Active Substance: ATOMOXETINE HYDROCHLORIDE
     Indication: ATTENTION DEFICIT HYPERACTIVITY DISORDER
     Route: 064
  2. CONCERTA [Suspect]
     Active Substance: METHYLPHENIDATE HYDROCHLORIDE
     Indication: ATTENTION DEFICIT HYPERACTIVITY DISORDER
     Route: 064

REACTIONS (11)
  - Limb malformation [Unknown]
  - Apgar score low [Unknown]
  - Low birth weight baby [Unknown]
  - Foetal exposure during pregnancy [Recovered/Resolved]
  - Congenital anomaly [Unknown]
  - Atrial septal defect [Unknown]
  - Premature baby [Unknown]
  - Heart disease congenital [Unknown]
  - Ventricular septal defect [Unknown]
  - Small for dates baby [Unknown]
  - Congenital central nervous system anomaly [Unknown]
